FAERS Safety Report 4350715-9 (Version None)
Quarter: 2004Q2

REPORT INFORMATION
  Report Type: 
  Country: None (occurrence: None)
  Receive Date: 20040427
  Receipt Date: 20040413
  Transmission Date: 20050107
  Serious: Yes (Life-Threatening, Hospitalization)
  Sender: FDA-Public Use
  Company Number: 6008395

PATIENT
  Age: 74 Year
  Sex: Male

DRUGS (7)
  1. GLUCOPHAGE 850 MG (TABLETS) (METFORMINH HYDROCHLORIDE) [Suspect]
     Indication: DIABETES MELLITUS
     Dosage: ORAL
     Route: 048
  2. IODORADIOPAQUE [Suspect]
     Indication: CORONARY ARTERY ATHEROSCLEROSIS
     Dosage: INTRAVENOUS
     Route: 042
     Dates: start: 20040218, end: 20040218
  3. LOVENOX [Suspect]
     Indication: PROPHYLACTIC CHEMOTHERAPY
     Dosage: 2 DOSAGE FORMS, SUBCUTANEOUS
     Route: 058
     Dates: start: 20040219, end: 20040229
  4. LASIX [Suspect]
     Indication: CARDIAC DISORDER
     Dosage: ORAL
     Route: 048
  5. RAMIPRIL [Suspect]
     Indication: CARDIAC DISORDER
     Dosage: ORAL
     Route: 048
  6. CORDARONE [Concomitant]
  7. DIAMICRON (GLICLAZIDE) [Concomitant]

REACTIONS (5)
  - DRUG INTERACTION [None]
  - GENERAL PHYSICAL CONDITION ABNORMAL [None]
  - HAEMODIALYSIS [None]
  - HYPERKALAEMIA [None]
  - RENAL FAILURE ACUTE [None]
